FAERS Safety Report 8189411 (Version 2)
Quarter: 2012Q4

REPORT INFORMATION
  Report Type: 
  Country: US (occurrence: US)
  Receive Date: 20111019
  Receipt Date: 20121121
  Transmission Date: 20130627
  Serious: No
  Sender: FDA-Public Use
  Company Number: US-BRISTOL-MYERS SQUIBB COMPANY-15517451

PATIENT
  Sex: Male

DRUGS (1)
  1. AVALIDE [Suspect]
     Dosage: 1Df= 300/12.5mg, Bottle 1x30Us

REACTIONS (2)
  - Malaise [Unknown]
  - Feeling abnormal [Unknown]
